FAERS Safety Report 8854804 (Version 4)
Quarter: 2013Q1

REPORT INFORMATION
  Report Type: Spontaneous
  Country: GB (occurrence: GB)
  Receive Date: 20121023
  Receipt Date: 20130115
  Transmission Date: 20140127
  Serious: Yes (Hospitalization)
  Sender: FDA-Public Use
  Company Number: PHFR2012GB005529

PATIENT
  Age: 31 Year
  Sex: Female

DRUGS (2)
  1. CLOZARIL [Suspect]
     Indication: SCHIZOPHRENIA
     Dosage: UNK UKN, UNK
     Route: 048
     Dates: start: 20100301
  2. PARACETAMOL [Suspect]
     Dosage: UNK UKN, UNK

REACTIONS (1)
  - Overdose [Recovered/Resolved with Sequelae]
